FAERS Safety Report 9601681 (Version 1)
Quarter: 2013Q4

REPORT INFORMATION
  Report Type: Spontaneous
  Country: US (occurrence: None)
  Receive Date: 20131004
  Receipt Date: 20131004
  Transmission Date: 20140711
  Serious: No
  Sender: FDA-Public Use
  Company Number: None

PATIENT
  Sex: 0

DRUGS (1)
  1. METHYLPHENIDATE [Suspect]
     Dosage: 120 ML WHEN RECONSTITUTED

REACTIONS (4)
  - Aggression [None]
  - Abnormal behaviour [None]
  - Lethargy [None]
  - Overdose [None]
